FAERS Safety Report 10371160 (Version 1)
Quarter: 2014Q3

REPORT INFORMATION
  Report Type: Spontaneous
  Country: US (occurrence: US)
  Receive Date: 20140808
  Receipt Date: 20140808
  Transmission Date: 20150326
  Serious: Yes (Hospitalization)
  Sender: FDA-Public Use
  Company Number: US-009507513-1407USA013432

PATIENT
  Sex: Female
  Weight: 44.9 kg

DRUGS (1)
  1. NUVARING [Suspect]
     Active Substance: ETHINYL ESTRADIOL\ETONOGESTREL
     Indication: CONTRACEPTION
     Dosage: 0.12-0.015 MG
     Route: 067
     Dates: start: 20101109, end: 20111107

REACTIONS (9)
  - Gastrooesophageal reflux disease [Unknown]
  - Deep vein thrombosis [Unknown]
  - Pneumonia [Unknown]
  - Thrombectomy [Unknown]
  - Adverse event [Unknown]
  - Coeliac disease [Unknown]
  - Anaemia [Unknown]
  - Chest pain [Recovered/Resolved]
  - Hypomagnesaemia [Unknown]

NARRATIVE: CASE EVENT DATE: 2011
